FAERS Safety Report 23915834 (Version 1)
Quarter: 2024Q2

REPORT INFORMATION
  Report Type: Spontaneous
  Country: US (occurrence: US)
  Receive Date: 20240529
  Receipt Date: 20240529
  Transmission Date: 20240715
  Serious: No
  Sender: FDA-Public Use
  Company Number: US-INCYTE CORPORATION-2024IN005504

PATIENT

DRUGS (1)
  1. JAKAFI [Suspect]
     Active Substance: RUXOLITINIB
     Indication: Myelofibrosis
     Dosage: 10 MILLIGRAM, BID, TAKE 12 HOURS APART. TAKE WLTH OR WLTHOUT FOOD.
     Route: 048
     Dates: start: 20240316

REACTIONS (2)
  - Fatigue [Unknown]
  - Back pain [Unknown]
